FAERS Safety Report 21143306 (Version 2)
Quarter: 2022Q3

REPORT INFORMATION
  Report Type: Spontaneous
  Country: JP (occurrence: JP)
  Receive Date: 20220728
  Receipt Date: 20220801
  Transmission Date: 20221027
  Serious: Yes (Hospitalization, Other)
  Sender: FDA-Public Use
  Company Number: JP-MLMSERVICE-20220614-3613141-1

PATIENT
  Age: 40 Year
  Sex: Female

DRUGS (8)
  1. PREMARIN [Suspect]
     Active Substance: ESTROGENS, CONJUGATED
     Indication: Luteal phase deficiency
     Dosage: UNK
     Dates: start: 20080522, end: 20110901
  2. PROVERA [Suspect]
     Active Substance: MEDROXYPROGESTERONE ACETATE
     Indication: Luteal phase deficiency
     Dosage: UNK
     Dates: start: 20170525, end: 20180910
  3. DUPHASTON [Suspect]
     Active Substance: DYDROGESTERONE
     Indication: Luteal phase deficiency
     Dosage: 2 TAB
     Dates: start: 20080522, end: 20151119
  4. DUPHASTON [Suspect]
     Active Substance: DYDROGESTERONE
     Indication: Luteal phase deficiency
     Dosage: UNK
     Dates: start: 20151119, end: 20170525
  5. DUPHASTON [Suspect]
     Active Substance: DYDROGESTERONE
     Dosage: UNK
     Dates: start: 20180910, end: 202012
  6. ESTRADIOL [Suspect]
     Active Substance: ESTRADIOL
     Indication: Luteal phase deficiency
     Dosage: UNK
     Dates: start: 20180910, end: 202012
  7. ESTRADIOL [Suspect]
     Active Substance: ESTRADIOL
     Dosage: UNK
     Dates: start: 20110901, end: 20111027
  8. ESTRADIOL [Suspect]
     Active Substance: ESTRADIOL
     Indication: Luteal phase deficiency
     Dosage: UNK
     Dates: start: 20111027, end: 20180910

REACTIONS (2)
  - Budd-Chiari syndrome [Unknown]
  - Gastric varices [Unknown]
